FAERS Safety Report 5040455-5 (Version None)
Quarter: 2006Q2

REPORT INFORMATION
  Report Type: 
  Country: None (occurrence: None)
  Receive Date: 20060627
  Receipt Date: 20060627
  Transmission Date: 20061013
  Serious: Yes (Other)
  Sender: FDA-Public Use
  Company Number: None

PATIENT
  Sex: Male
  Weight: 122.4712 kg

DRUGS (1)
  1. RISPERIDONE [Suspect]
     Indication: BIPOLAR DISORDER
     Dosage: 4MG  DAILY PO
     Route: 048
     Dates: start: 19970123, end: 20060512

REACTIONS (2)
  - BLOOD PROLACTIN INCREASED [None]
  - HYPERTROPHY BREAST [None]
